FAERS Safety Report 6608351-7 (Version None)
Quarter: 2010Q1

REPORT INFORMATION
  Report Type: 
  Country: None (occurrence: None)
  Receive Date: 20100301
  Receipt Date: 20100223
  Transmission Date: 20100710
  Serious: Yes (Hospitalization)
  Sender: FDA-Public Use
  Company Number: KR-BRISTOL-MYERS SQUIBB COMPANY-14988760

PATIENT
  Age: 51 Year
  Sex: Female

DRUGS (4)
  1. CETUXIMAB [Suspect]
     Indication: HEAD AND NECK CANCER
     Dosage: 400MG/M2 FROM 26AUG-26AUG09;250MG/M2 02SEP09;RECENT INF ON 08DEC09;
     Route: 042
     Dates: start: 20090826
  2. CISPLATIN [Suspect]
     Indication: HEAD AND NECK CANCER
     Dosage: 75MG/M2 FROM 26AUG-07OCT09;05NOV09(30MG/M2-1/1WK);RECENT INF ON 09DEC09
     Route: 042
     Dates: start: 20090826
  3. DOCETAXEL [Suspect]
     Indication: HEAD AND NECK CANCER
     Dosage: MOST RECENT INF:07OCT2009
     Route: 042
     Dates: start: 20090826
  4. RADIOTHERAPY [Suspect]
     Indication: HEAD AND NECK CANCER

REACTIONS (1)
  - STOMATITIS [None]
